FAERS Safety Report 5646908-0 (Version None)
Quarter: 2008Q1

REPORT INFORMATION
  Report Type: 
  Country: None (occurrence: None)
  Receive Date: 20080303
  Receipt Date: 20080221
  Transmission Date: 20080703
  Serious: Yes (Other)
  Sender: FDA-Public Use
  Company Number: US-ELI_LILLY_AND_COMPANY-US200802005239

PATIENT
  Age: 33 Year
  Sex: Female

DRUGS (3)
  1. XIGRIS [Suspect]
     Indication: SEPSIS
     Dosage: UNK, OTHER
     Dates: start: 20080218, end: 20080220
  2. OXYGEN [Concomitant]
     Indication: MECHANICAL VENTILATION
  3. HYPNOTICS AND SEDATIVES [Concomitant]
     Indication: MECHANICAL VENTILATION

REACTIONS (1)
  - EMPYEMA [None]
